FAERS Safety Report 4844837-3 (Version None)
Quarter: 2005Q4

REPORT INFORMATION
  Report Type: 
  Country: None (occurrence: None)
  Receive Date: 20051125
  Receipt Date: 20051109
  Transmission Date: 20060501
  Serious: Yes (Death)
  Sender: FDA-Public Use
  Company Number: JP_050907500

PATIENT
  Age: 84 Year
  Sex: Male
  Weight: 47 kg

DRUGS (1)
  1. GEMZAR [Suspect]
     Indication: PANCREATIC CARCINOMA STAGE II
     Dosage: 1000 MG, OTHER, INTRAVENOUS
     Route: 042
     Dates: start: 20050805, end: 20050819

REACTIONS (11)
  - ABDOMINAL DISTENSION [None]
  - ASCITES [None]
  - CONDITION AGGRAVATED [None]
  - CONSTIPATION [None]
  - DECREASED APPETITE [None]
  - FAT NECROSIS [None]
  - PANCREATIC HAEMORRHAGE [None]
  - PANCREATIC PSEUDOCYST [None]
  - PANCREATITIS ACUTE [None]
  - PSEUDOCYST [None]
  - RESUSCITATION [None]
